FAERS Safety Report 7919964-4 (Version None)
Quarter: 2011Q4

REPORT INFORMATION
  Report Type: 
  Country: None (occurrence: None)
  Receive Date: 20111117
  Receipt Date: 20111103
  Transmission Date: 20120403
  Serious: Yes (Hospitalization, Other)
  Sender: FDA-Public Use
  Company Number: AU-CELGENEUS-008-C5013-10112259

PATIENT
  Sex: Male
  Weight: 81 kg

DRUGS (5)
  1. LENALIDOMIDE [Suspect]
     Indication: MULTIPLE MYELOMA
     Dosage: 10 MILLIGRAM
     Route: 048
     Dates: start: 20070926, end: 20101111
  2. MELPHALAN HYDROCHLORIDE [Suspect]
     Dosage: .14 MILLIGRAM/KILOGRAM
     Route: 065
  3. PREDNISONE TAB [Suspect]
     Indication: MULTIPLE MYELOMA
     Dosage: 2 MILLIGRAM/KILOGRAM
     Route: 065
     Dates: start: 20070926, end: 20081013
  4. MELPHALAN HYDROCHLORIDE [Suspect]
     Dosage: .1 MILLIGRAM/KILOGRAM
     Route: 065
     Dates: end: 20080804
  5. MELPHALAN HYDROCHLORIDE [Suspect]
     Indication: MULTIPLE MYELOMA
     Dosage: .18 MILLIGRAM/KILOGRAM
     Route: 065
     Dates: start: 20070926

REACTIONS (1)
  - T-CELL TYPE ACUTE LEUKAEMIA [None]
